FAERS Safety Report 25494384 (Version 1)
Quarter: 2025Q2

REPORT INFORMATION
  Report Type: Spontaneous
  Country: US (occurrence: US)
  Receive Date: 20250630
  Receipt Date: 20250630
  Transmission Date: 20250717
  Serious: Yes (Hospitalization)
  Sender: DIFGEN PHARMACEUTICALS LLC
  Company Number: US-Difgen-012049

PATIENT
  Age: 36 Year
  Sex: Male

DRUGS (2)
  1. BUPIVACAINE [Suspect]
     Active Substance: BUPIVACAINE
     Indication: Pain
     Dosage: CONCENTRATION, 35 MG/ML
     Route: 065
  2. FENTANYL [Suspect]
     Active Substance: FENTANYL
     Indication: Pain
     Dosage: CONCENTRATION, 14 MG/ML
     Route: 065

REACTIONS (1)
  - Catheter site granuloma [Recovered/Resolved]
